FAERS Safety Report 11720886 (Version 1)
Quarter: 2015Q4

REPORT INFORMATION
  Report Type: Spontaneous
  Country: US (occurrence: US)
  Receive Date: 20151110
  Receipt Date: 20151110
  Transmission Date: 20160304
  Serious: No
  Sender: FDA-Public Use
  Company Number: US-SA-2015SA126353

PATIENT
  Age: 67 Year
  Sex: Female
  Weight: 59.87 kg

DRUGS (17)
  1. ASPIRIN. [Concomitant]
     Active Substance: ASPIRIN
  2. VITAMIN D [Concomitant]
     Active Substance: CHOLECALCIFEROL
     Dosage: 5000
  3. CLONOPIN [Concomitant]
     Active Substance: CLONAZEPAM
  4. LIVALO [Concomitant]
     Active Substance: PITAVASTATIN CALCIUM
     Dosage: FREQUENCY: ONCE A WEEK
  5. ZYRTEC [Concomitant]
     Active Substance: CETIRIZINE HYDROCHLORIDE
     Indication: HYPERSENSITIVITY
  6. SPIRIVA [Concomitant]
     Active Substance: TIOTROPIUM BROMIDE MONOHYDRATE
  7. QNASL [Concomitant]
     Active Substance: BECLOMETHASONE DIPROPIONATE
  8. PRALUENT [Suspect]
     Active Substance: ALIROCUMAB
     Indication: BLOOD CHOLESTEROL INCREASED
     Dosage: FREEQUENCY: EVERY TWO WEEKS
     Route: 058
     Dates: start: 20150812
  9. TRAMADOL HYDROCHLORIDE. [Concomitant]
     Active Substance: TRAMADOL HYDROCHLORIDE
     Indication: PAIN
     Dates: start: 20150827, end: 20150831
  10. MAGNESIUM [Concomitant]
     Active Substance: MAGNESIUM
  11. PRALUENT [Suspect]
     Active Substance: ALIROCUMAB
     Indication: HYPERLIPIDAEMIA
     Dosage: FREEQUENCY: EVERY TWO WEEKS
     Route: 058
     Dates: start: 20150812
  12. ZETIA [Concomitant]
     Active Substance: EZETIMIBE
     Dosage: THERAPY START DATE: EITHER AUG-2015 OR SEP-2015
  13. ALIROCUMAB PREFILLED PEN [Concomitant]
     Dosage: DOSAGE AND STRENGTH: 75MG/ML
  14. ZANTAC [Concomitant]
     Active Substance: RANITIDINE HYDROCHLORIDE
  15. DEXAMETHASONE/TOBRAMYCIN [Concomitant]
     Dosage: DOSE: 0.3%-0
  16. STOOL SOFTENER [Concomitant]
     Active Substance: DOCUSATE CALCIUM
  17. MANGANESE [Concomitant]
     Active Substance: MANGANESE\MANGANESE CHLORIDE

REACTIONS (5)
  - Influenza like illness [Unknown]
  - Skin atrophy [Not Recovered/Not Resolved]
  - Laceration [Not Recovered/Not Resolved]
  - Contusion [Not Recovered/Not Resolved]
  - Rash erythematous [Not Recovered/Not Resolved]

NARRATIVE: CASE EVENT DATE: 2015
